FAERS Safety Report 8943715 (Version 1)
Quarter: 2012Q4

REPORT INFORMATION
  Report Type: 
  Country: US (occurrence: US)
  Receive Date: 20121203
  Receipt Date: 20121203
  Transmission Date: 20130627
  Serious: Yes (Hospitalization)
  Sender: FDA-Public Use
  Company Number: US-GLAXOSMITHKLINE-A0815627A

PATIENT
  Age: 40 Year
  Sex: Female
  Weight: 131.2 kg

DRUGS (1)
  1. AVANDIA [Suspect]
     Indication: DIABETES MELLITUS
     Dosage: 4MG Twice per day
     Route: 048
     Dates: end: 2007

REACTIONS (4)
  - Cardiac failure congestive [Not Recovered/Not Resolved]
  - Arterial occlusive disease [Unknown]
  - Loss of consciousness [Unknown]
  - Angina unstable [Unknown]
